FAERS Safety Report 19373428 (Version 5)
Quarter: 2022Q2

REPORT INFORMATION
  Report Type: Report from Study
  Country: DE (occurrence: DE)
  Receive Date: 20210603
  Receipt Date: 20220624
  Transmission Date: 20220721
  Serious: Yes (Hospitalization)
  Sender: FDA-Public Use
  Company Number: DE-JNJFOC-20210519174

PATIENT
  Age: 56 Year
  Sex: Male

DRUGS (12)
  1. IBRUTINIB [Suspect]
     Active Substance: IBRUTINIB
     Indication: Mantle cell lymphoma
     Route: 048
     Dates: start: 20200725, end: 20210502
  2. RITUXIMAB [Concomitant]
     Active Substance: RITUXIMAB
     Indication: Mantle cell lymphoma
     Dosage: RECENT DOSE PRIOR TO EVENT: 14 NOV 2020
     Route: 065
     Dates: start: 20200723
  3. CYCLOPHOSPHAMIDE [Concomitant]
     Active Substance: CYCLOPHOSPHAMIDE
     Indication: Mantle cell lymphoma
     Dosage: RECENT DOSE PRIOR TO EVENT: 14 NOV 2020
     Route: 065
     Dates: start: 20200723
  4. DOXORUBICIN [Concomitant]
     Active Substance: DOXORUBICIN
     Indication: Mantle cell lymphoma
     Dosage: RECENT DOSE PRIOR TO EVENT: 14 NOV 2020
     Route: 065
     Dates: start: 20200723
  5. PREDNISONE [Concomitant]
     Active Substance: PREDNISONE
     Indication: Mantle cell lymphoma
     Dosage: RECENT DOSE PRIOR TO EVENT: 14 NOV 2020
     Route: 065
     Dates: start: 20200723
  6. DEXAMETHASONE [Concomitant]
     Active Substance: DEXAMETHASONE
     Indication: Mantle cell lymphoma
     Dosage: RECENT DOSE PRIOR TO EVENT: 14 NOV 2020
     Route: 065
     Dates: start: 20200723
  7. CYTARABINE [Concomitant]
     Active Substance: CYTARABINE
     Indication: Mantle cell lymphoma
     Dosage: RECENT DOSE PRIOR TO EVENT: 14 NOV 2020
     Route: 065
     Dates: start: 20200723
  8. VINCRISTINE [Concomitant]
     Active Substance: VINCRISTINE
     Indication: Mantle cell lymphoma
     Dosage: RECENT DOSE PRIOR TO EVENT: 14 NOV 2020
     Route: 065
     Dates: start: 20200723
  9. OXALIPLATIN [Concomitant]
     Active Substance: OXALIPLATIN
     Indication: Mantle cell lymphoma
     Dosage: RECENT DOSE PRIOR TO EVENT: 14 NOV 2020
     Route: 065
     Dates: start: 20200723
  10. ACYCLOVIR [Concomitant]
     Active Substance: ACYCLOVIR
     Indication: Prophylaxis
     Dates: start: 20200903
  11. COTRIMOXAZOLE [Concomitant]
     Active Substance: SULFAMETHOXAZOLE\TRIMETHOPRIM
     Indication: Prophylaxis
     Dates: start: 20200903
  12. GRANULOCYTE COLONY-STIMULATING FACTOR NOS [Concomitant]
     Active Substance: GRANULOCYTE COLONY-STIMULATING FACTOR NOS
     Indication: Product used for unknown indication

REACTIONS (2)
  - Haematoma [Recovered/Resolved]
  - Limb injury [Recovered/Resolved]

NARRATIVE: CASE EVENT DATE: 20210503
